FAERS Safety Report 7030637-5 (Version None)
Quarter: 2010Q4

REPORT INFORMATION
  Report Type: 
  Country: None (occurrence: None)
  Receive Date: 20101006
  Receipt Date: 20100927
  Transmission Date: 20110411
  Serious: Yes (Hospitalization)
  Sender: FDA-Public Use
  Company Number: BE-ROCHE-730260

PATIENT
  Sex: Male

DRUGS (2)
  1. AVASTIN [Suspect]
     Route: 042
     Dates: end: 20100701
  2. HEPARIN [Concomitant]

REACTIONS (2)
  - INTESTINAL OBSTRUCTION [None]
  - WOUND DEHISCENCE [None]
